FAERS Safety Report 9611953 (Version 3)
Quarter: 2014Q3

REPORT INFORMATION
  Report Type: Spontaneous
  Country: US (occurrence: US)
  Receive Date: 20131010
  Receipt Date: 20140917
  Transmission Date: 20150326
  Serious: Yes (Hospitalization, Other)
  Sender: FDA-Public Use
  Company Number: US-SA-2013SA097832

PATIENT
  Age: 75 Year
  Sex: Female

DRUGS (5)
  1. LANTUS SOLOSTAR [Suspect]
     Active Substance: INSULIN GLARGINE
     Indication: TYPE 2 DIABETES MELLITUS
     Dosage: MORNING DOSE:32 UNIT(S)
     Route: 065
     Dates: start: 2010
  2. LANTUS SOLOSTAR [Suspect]
     Active Substance: INSULIN GLARGINE
     Indication: TYPE 2 DIABETES MELLITUS
     Dosage: MORNING DOSE:32 UNIT(S)
     Route: 065
     Dates: start: 2010
  3. LANTUS SOLOSTAR [Suspect]
     Active Substance: INSULIN GLARGINE
     Indication: TYPE 2 DIABETES MELLITUS
     Dosage: ONLY A PARTIAL DOSE
     Route: 065
  4. LANTUS SOLOSTAR [Suspect]
     Active Substance: INSULIN GLARGINE
     Indication: TYPE 2 DIABETES MELLITUS
     Dosage: MORNING DOSE:32 UNIT(S)
     Route: 065
     Dates: start: 2010
  5. SOLOSTAR [Concomitant]
     Active Substance: DEVICE

REACTIONS (13)
  - Visual acuity reduced [Unknown]
  - Adverse event [Unknown]
  - Fall [Unknown]
  - Deafness [Unknown]
  - Balance disorder [Unknown]
  - Neuropathy peripheral [Unknown]
  - Cataract [Unknown]
  - Ulcer [Unknown]
  - Renal disorder [Unknown]
  - Weight increased [Unknown]
  - Injection site pain [Unknown]
  - Pneumonia [Unknown]
  - Malaise [Unknown]
